FAERS Safety Report 22334427 (Version 2)
Quarter: 2023Q2

REPORT INFORMATION
  Report Type: Spontaneous
  Country: US (occurrence: US)
  Receive Date: 20230517
  Receipt Date: 20230615
  Transmission Date: 20230722
  Serious: No
  Sender: FDA-Public Use
  Company Number: US-drreddys-SPO/USA/23/0163747

PATIENT
  Age: 18 Year
  Sex: Female

DRUGS (1)
  1. LEVOCETIRIZINE DIHYDROCHLORIDE [Suspect]
     Active Substance: LEVOCETIRIZINE DIHYDROCHLORIDE
     Indication: Product used for unknown indication
     Route: 048
     Dates: start: 20230409

REACTIONS (5)
  - Eye pruritus [Unknown]
  - Throat irritation [Unknown]
  - Sinus congestion [Unknown]
  - Drug ineffective [Unknown]
  - Product quality issue [Unknown]
